FAERS Safety Report 23165891 (Version 1)
Quarter: 2023Q4

REPORT INFORMATION
  Report Type: Spontaneous
  Country: EG (occurrence: EG)
  Receive Date: 20231109
  Receipt Date: 20231109
  Transmission Date: 20240110
  Serious: Yes (Hospitalization, Other)
  Sender: FDA-Public Use
  Company Number: EG-PFIZER INC-PV202300180872

PATIENT
  Age: 17 Year
  Sex: Male

DRUGS (4)
  1. ADRIAMYCIN [Suspect]
     Active Substance: DOXORUBICIN HYDROCHLORIDE
     Indication: Acute myelomonocytic leukaemia
     Dosage: 90 MG, DAILY FOR 3 DAYS
     Route: 042
     Dates: start: 20230902, end: 20230908
  2. ADRIAMYCIN [Suspect]
     Active Substance: DOXORUBICIN HYDROCHLORIDE
     Dosage: 90 MG, DAILY FOR 3 DAYS
     Route: 042
     Dates: start: 20231003
  3. CYTARABINE [Suspect]
     Active Substance: CYTARABINE
     Indication: Acute myelomonocytic leukaemia
     Dosage: 100 MG, 2X/DAY, DAY 1,3 AND 5
     Route: 042
     Dates: start: 20230902, end: 20230908
  4. CYTARABINE [Suspect]
     Active Substance: CYTARABINE
     Dosage: 1 G, 2X/DAY, DAY 1 ,3 AND 5
     Route: 042
     Dates: start: 20231003

REACTIONS (7)
  - Pyrexia [Unknown]
  - Febrile neutropenia [Unknown]
  - Pancytopenia [Unknown]
  - Anaemia [Unknown]
  - Leukopenia [Unknown]
  - Thrombocytopenia [Unknown]
  - Disease recurrence [Unknown]

NARRATIVE: CASE EVENT DATE: 20230905
